FAERS Safety Report 22609277 (Version 2)
Quarter: 2023Q2

REPORT INFORMATION
  Report Type: Spontaneous
  Country: CA (occurrence: CA)
  Receive Date: 20230616
  Receipt Date: 20230628
  Transmission Date: 20230721
  Serious: Yes (Other)
  Sender: FDA-Public Use
  Company Number: CA-BAYER-2023A079740

PATIENT
  Age: 39 Year
  Sex: Female

DRUGS (2)
  1. KYLEENA [Suspect]
     Active Substance: LEVONORGESTREL
     Indication: Mood swings
     Dosage: 17.5?G/DAY
     Route: 015
     Dates: start: 20210929, end: 20230307
  2. KYLEENA [Suspect]
     Active Substance: LEVONORGESTREL
     Indication: Heavy menstrual bleeding

REACTIONS (14)
  - Facial paresis [Recovering/Resolving]
  - Eyelid ptosis [Recovered/Resolved]
  - Migraine [Recovering/Resolving]
  - Ocular discomfort [Recovering/Resolving]
  - Eye pain [Recovering/Resolving]
  - Facial pain [Recovering/Resolving]
  - Depression [Not Recovered/Not Resolved]
  - Mood altered [Recovering/Resolving]
  - Inadequate lubrication [Recovering/Resolving]
  - Vulvovaginal dryness [Recovering/Resolving]
  - Mucosal dryness [Recovering/Resolving]
  - Dehydration [Recovering/Resolving]
  - Procedural pain [Recovered/Resolved]
  - Nausea [Recovering/Resolving]

NARRATIVE: CASE EVENT DATE: 20210929
